FAERS Safety Report 20820013 (Version 7)
Quarter: 2024Q2

REPORT INFORMATION
  Report Type: Report from Study
  Country: CA (occurrence: CA)
  Receive Date: 20220512
  Receipt Date: 20240625
  Transmission Date: 20240716
  Serious: Yes (Hospitalization, Other)
  Sender: FDA-Public Use
  Company Number: CA-TAKEDA-2022TUS030951

PATIENT
  Age: 63 Year
  Sex: Female

DRUGS (7)
  1. VEDOLIZUMAB [Suspect]
     Active Substance: VEDOLIZUMAB
     Indication: Crohn^s disease
     Dosage: 300 MILLIGRAM
     Route: 042
     Dates: start: 20220121
  2. VEDOLIZUMAB [Suspect]
     Active Substance: VEDOLIZUMAB
     Dosage: 300 MILLIGRAM
     Route: 042
  3. VEDOLIZUMAB [Suspect]
     Active Substance: VEDOLIZUMAB
     Dosage: 300 MILLIGRAM
     Route: 042
  4. VEDOLIZUMAB [Suspect]
     Active Substance: VEDOLIZUMAB
     Dosage: 300 MILLIGRAM
     Route: 042
  5. VEDOLIZUMAB [Suspect]
     Active Substance: VEDOLIZUMAB
     Dosage: 300 MILLIGRAM
     Route: 042
  6. PRISTIQ EXTENDED-RELEASE [Suspect]
     Active Substance: DESVENLAFAXINE SUCCINATE
     Indication: Antidepressant therapy
     Dosage: UNK
     Route: 065
  7. MESALAMINE [Concomitant]
     Active Substance: MESALAMINE
     Dosage: UNK
     Route: 048

REACTIONS (39)
  - Electrocardiogram QT prolonged [Unknown]
  - Palpitations [Unknown]
  - Heart rate increased [Unknown]
  - Coccydynia [Unknown]
  - Oral herpes [Unknown]
  - Tremor [Unknown]
  - Asthenia [Unknown]
  - Anal incontinence [Unknown]
  - Osteoporosis [Unknown]
  - Stomatitis [Unknown]
  - Mental fatigue [Unknown]
  - Blood thyroid stimulating hormone increased [Unknown]
  - Memory impairment [Unknown]
  - Abdominal discomfort [Unknown]
  - Bowel movement irregularity [Unknown]
  - Confusional state [Unknown]
  - Hepatic enzyme increased [Unknown]
  - Bladder discomfort [Unknown]
  - Fungal infection [Unknown]
  - Diarrhoea [Unknown]
  - Sinus congestion [Unknown]
  - Gingival swelling [Unknown]
  - Ear discomfort [Unknown]
  - Chronic sinusitis [Unknown]
  - Lymph node pain [Unknown]
  - Chest discomfort [Not Recovered/Not Resolved]
  - Cystitis [Not Recovered/Not Resolved]
  - Blood pressure increased [Unknown]
  - Vomiting [Unknown]
  - Abdominal distension [Unknown]
  - Muscle spasms [Unknown]
  - Eczema [Unknown]
  - Headache [Unknown]
  - Arthralgia [Unknown]
  - Nasopharyngitis [Not Recovered/Not Resolved]
  - Fatigue [Unknown]
  - Nausea [Unknown]
  - Oropharyngeal pain [Not Recovered/Not Resolved]
  - Cough [Unknown]

NARRATIVE: CASE EVENT DATE: 20221022
